FAERS Safety Report 7469144-4 (Version None)
Quarter: 2011Q2

REPORT INFORMATION
  Report Type: 
  Country: None (occurrence: None)
  Receive Date: 20110510
  Receipt Date: 20101220
  Transmission Date: 20111010
  Serious: Yes (Other)
  Sender: FDA-Public Use
  Company Number: US-BAYER-201014293NA

PATIENT
  Age: 19 Year
  Sex: Female
  Weight: 91 kg

DRUGS (7)
  1. ADVIL LIQUI-GELS [Concomitant]
     Dates: start: 20040101
  2. YAZ [Suspect]
     Indication: PRODUCT USED FOR UNKNOWN INDICATION
     Dosage: UNK
     Route: 048
     Dates: start: 20080501, end: 20080615
  3. BACTRIM [Concomitant]
     Dates: start: 19880101
  4. MOTRIN [Concomitant]
     Dates: start: 20040101
  5. AMOXICILLIN [Concomitant]
     Dates: start: 19880101
  6. YASMIN [Suspect]
     Indication: PRODUCT USED FOR UNKNOWN INDICATION
     Dosage: UNK UNK, UNK
     Route: 048
     Dates: start: 20051201, end: 20070515
  7. PROAIR HFA [Concomitant]
     Indication: ASTHMA
     Route: 055
     Dates: start: 19920101

REACTIONS (10)
  - POLLAKIURIA [None]
  - ABDOMINAL PAIN UPPER [None]
  - PANCREATITIS [None]
  - ABDOMINAL PAIN [None]
  - DYSURIA [None]
  - COITAL BLEEDING [None]
  - CHOLELITHIASIS [None]
  - NAUSEA [None]
  - VOMITING [None]
  - METRORRHAGIA [None]
